FAERS Safety Report 8098646-5 (Version None)
Quarter: 2012Q1

REPORT INFORMATION
  Report Type: 
  Country: None (occurrence: None)
  Receive Date: 20120129
  Receipt Date: 20111024
  Transmission Date: 20120608
  Serious: No
  Sender: FDA-Public Use
  Company Number: US-ABBOTT-11P-163-0867742-00

PATIENT
  Age: 61 Year
  Sex: Female

DRUGS (14)
  1. MULTIPLE VITAMINS [Concomitant]
     Indication: VITAMIN SUPPLEMENTATION
     Route: 048
  2. HUMIRA [Suspect]
     Dates: start: 20111023
  3. METHOTREXATE [Concomitant]
     Indication: PRODUCT USED FOR UNKNOWN INDICATION
     Dosage: EIGHT PILLS EVERY WEEK
  4. LOVASTATIN [Concomitant]
     Indication: BLOOD CHOLESTEROL
     Route: 048
  5. ALPRAZOLAM [Concomitant]
     Indication: INSOMNIA
     Dosage: ONCE EVERY NIGHT
     Route: 048
  6. HUMIRA [Suspect]
     Indication: PSORIATIC ARTHROPATHY
     Dates: start: 20090801
  7. FISH OIL [Concomitant]
     Indication: SUPPLEMENTATION THERAPY
     Route: 048
  8. HYDROCODONE BITARTRATE [Concomitant]
     Indication: PAIN
  9. FOLIC ACID [Concomitant]
     Indication: VITAMIN SUPPLEMENTATION
     Route: 048
  10. VITAMIN D [Concomitant]
     Indication: SUPPLEMENTATION THERAPY
     Route: 048
  11. PAXIL [Concomitant]
     Indication: PRODUCT USED FOR UNKNOWN INDICATION
     Route: 048
  12. CALCIUM [Concomitant]
     Indication: OSTEOPENIA
     Route: 048
  13. ASPIRIN [Concomitant]
     Indication: CARDIOVASCULAR EVENT PROPHYLAXIS
     Route: 048
  14. HYDROCODONE BITARTRATE [Concomitant]
     Indication: INSOMNIA
     Dosage: ONCE EVERY NIGHT
     Route: 048

REACTIONS (4)
  - OROPHARYNGEAL PAIN [None]
  - LYMPHADENOPATHY [None]
  - PAIN IN EXTREMITY [None]
  - RHINORRHOEA [None]
